FAERS Safety Report 26072086 (Version 1)
Quarter: 2025Q4

REPORT INFORMATION
  Report Type: Spontaneous
  Country: EU (occurrence: EU)
  Receive Date: 20251120
  Receipt Date: 20251120
  Transmission Date: 20260117
  Serious: Yes (Other)
  Sender: MYLAN
  Company Number: EU-SA-2019SA115633

PATIENT
  Age: 35 Year
  Sex: Female

DRUGS (12)
  1. PREGABALIN [Suspect]
     Active Substance: PREGABALIN
     Indication: Focal dyscognitive seizures
     Dosage: 225 MILLIGRAM
  2. PREGABALIN [Suspect]
     Active Substance: PREGABALIN
     Indication: Generalised tonic-clonic seizure
     Dosage: 225 MILLIGRAM
     Route: 065
  3. PREGABALIN [Suspect]
     Active Substance: PREGABALIN
     Indication: Partial seizures
     Dosage: 225 MILLIGRAM
     Route: 065
  4. PREGABALIN [Suspect]
     Active Substance: PREGABALIN
     Dosage: 225 MILLIGRAM
  5. VALPROATE [Suspect]
     Active Substance: VALPROIC ACID
     Indication: Generalised tonic-clonic seizure
     Dosage: 1500 MILLIGRAM
  6. VALPROATE [Suspect]
     Active Substance: VALPROIC ACID
     Indication: Focal dyscognitive seizures
     Dosage: 1500 MILLIGRAM
     Route: 065
  7. VALPROATE [Suspect]
     Active Substance: VALPROIC ACID
     Indication: Partial seizures
     Dosage: 1500 MILLIGRAM
     Route: 065
  8. VALPROATE [Suspect]
     Active Substance: VALPROIC ACID
     Dosage: 1500 MILLIGRAM
  9. LEVETIRACETAM [Suspect]
     Active Substance: LEVETIRACETAM
     Indication: Focal dyscognitive seizures
     Dosage: 3000 MILLIGRAM
  10. LEVETIRACETAM [Suspect]
     Active Substance: LEVETIRACETAM
     Indication: Generalised tonic-clonic seizure
     Dosage: 3000 MILLIGRAM
     Route: 065
  11. LEVETIRACETAM [Suspect]
     Active Substance: LEVETIRACETAM
     Indication: Partial seizures
     Dosage: 3000 MILLIGRAM
     Route: 065
  12. LEVETIRACETAM [Suspect]
     Active Substance: LEVETIRACETAM
     Dosage: 3000 MILLIGRAM

REACTIONS (4)
  - Paradoxical drug reaction [Unknown]
  - Seizure [Unknown]
  - Status epilepticus [Unknown]
  - Condition aggravated [Unknown]
